FAERS Safety Report 12390297 (Version 1)
Quarter: 2016Q2

REPORT INFORMATION
  Report Type: Spontaneous
  Country: US (occurrence: US)
  Receive Date: 20160520
  Receipt Date: 20160520
  Transmission Date: 20160815
  Serious: Yes (Other)
  Sender: FDA-Public Use
  Company Number: US-PFIZER INC-2016259046

PATIENT
  Sex: Male

DRUGS (2)
  1. ADVIL [Suspect]
     Active Substance: IBUPROFEN
     Indication: BACK PAIN
     Dosage: 12 TABLETS WITHIN A SIX HOUR TIME
  2. ADVIL [Suspect]
     Active Substance: IBUPROFEN
     Dosage: 1200 MG, WITHIN 6 HOURS

REACTIONS (8)
  - Sensory loss [Unknown]
  - Confusional state [Unknown]
  - Intentional overdose [Unknown]
  - Loss of consciousness [Recovered/Resolved]
  - Hyperhidrosis [Unknown]
  - Back disorder [Unknown]
  - Hypoaesthesia [Recovering/Resolving]
  - Product use issue [Unknown]
